FAERS Safety Report 4966153-1 (Version None)
Quarter: 2006Q1

REPORT INFORMATION
  Report Type: 
  Country: None (occurrence: None)
  Receive Date: 20060201
  Receipt Date: 20051128
  Transmission Date: 20060701
  Serious: No
  Sender: FDA-Public Use
  Company Number: 2005PV004954

PATIENT
  Age: 64 Year
  Sex: Female
  Weight: 89.7215 kg

DRUGS (13)
  1. BYETTA [Suspect]
     Indication: DIABETES MELLITUS NON-INSULIN-DEPENDENT
     Dosage: 5 MCG;BID;SC
     Route: 058
     Dates: start: 20051109, end: 20051127
  2. AMARYL [Concomitant]
  3. METFORMIN [Concomitant]
  4. ESTER-C [Concomitant]
  5. STRESS B [Concomitant]
  6. VITAMIN E /001105/ [Concomitant]
  7. CITRIMAX [Concomitant]
  8. MULTIVITAMIN AND MINERAL SUPPLEMENT [Concomitant]
  9. JOINT SOOTHER [Concomitant]
  10. GARLIC [Concomitant]
  11. HUMULIN N [Concomitant]
  12. ESTER C [Concomitant]
  13. MULTIVITAMIN AND MINERAL SUPPLEMENT [Concomitant]

REACTIONS (1)
  - PALPITATIONS [None]
